FAERS Safety Report 8788289 (Version 1)
Quarter: 2012Q4

REPORT INFORMATION
  Report Type: 
  Country: US (occurrence: US)
  Receive Date: 20120914
  Receipt Date: 20120914
  Transmission Date: 20130627
  Serious: No
  Sender: FDA-Public Use
  Company Number: US-VERTEX PHARMACEUTICAL INC.-AE-2012-011022

PATIENT
  Age: 49 None
  Sex: Female
  Weight: 95.3 kg

DRUGS (5)
  1. INCIVEK [Suspect]
     Indication: HEPATITIS C
     Route: 048
     Dates: start: 20120710
  2. RIBAPAK [Concomitant]
     Indication: HEPATITIS C
     Dates: start: 20120710
  3. PEGASYS [Concomitant]
     Indication: HEPATITIS C
     Route: 058
     Dates: start: 20120710
  4. POTASSIUM CHLORIDE [Concomitant]
  5. HYDROCHLOROTHIAZIDE [Concomitant]
     Route: 048

REACTIONS (6)
  - Pyrexia [Unknown]
  - Insomnia [Unknown]
  - Oedema peripheral [Unknown]
  - Fatigue [Unknown]
  - Haemorrhoids [Unknown]
  - Pruritus [Not Recovered/Not Resolved]
